FAERS Safety Report 5802404-9 (Version None)
Quarter: 2008Q3

REPORT INFORMATION
  Report Type: 
  Country: None (occurrence: None)
  Receive Date: 20080707
  Receipt Date: 20080501
  Transmission Date: 20090109
  Serious: Yes (Other)
  Sender: FDA-Public Use
  Company Number: US-MERCK-0805USA02358

PATIENT
  Sex: Male

DRUGS (1)
  1. SINGULAIR [Suspect]
     Route: 048
     Dates: start: 20070101, end: 20080301

REACTIONS (4)
  - PERSONALITY CHANGE [None]
  - SELF ESTEEM DECREASED [None]
  - SOCIAL PROBLEM [None]
  - SUICIDAL IDEATION [None]
